FAERS Safety Report 9860671 (Version 1)
Quarter: 2014Q1

REPORT INFORMATION
  Report Type: Spontaneous
  Country: GB (occurrence: None)
  Receive Date: 20140130
  Receipt Date: 20140130
  Transmission Date: 20141002
  Serious: Yes (Hospitalization)
  Sender: FDA-Public Use
  Company Number: FK201400192

PATIENT
  Age: 67 Year
  Sex: Female

DRUGS (14)
  1. FUROSEMIDE (MANUFACTURER UNKNOWN) (FUROSEMIDE) (FUROSEMIDE) [Suspect]
     Indication: OEDEMA PERIPHERAL
     Route: 048
     Dates: end: 20130912
  2. GTN (GLYCERYL TRINITRATE) [Concomitant]
  3. ASPIRIN (ACETYLSALICYLIC ACID) [Concomitant]
  4. ATENOLOL (ATENOLOL) [Concomitant]
  5. ATORVASTATIN (ATORVASTATIN) [Concomitant]
  6. CETIRIZINE (CETIRIZINE) [Concomitant]
  7. EVOREL (ESTRADIOL) [Concomitant]
  8. FOLIC ACID (FOLIC ACID) [Concomitant]
  9. LERCANIDIPINE (LERCANIDIPINE) [Concomitant]
  10. LEVOTHYROXINE SODIUM (LEVOTHYROXINE SODIUM) [Concomitant]
  11. METFORMIN (METFORMIN) [Concomitant]
  12. METHOTREXATE (METHOTREXATE) [Concomitant]
  13. MOXONIDINE (MOXONIDINE) [Concomitant]
  14. OXCARBAZEPINE (OXCARBAZEPINE) [Concomitant]

REACTIONS (2)
  - Epilepsy [None]
  - Hyponatraemia [None]
